FAERS Safety Report 17521656 (Version 1)
Quarter: 2020Q1

REPORT INFORMATION
  Report Type: Spontaneous
  Country: US (occurrence: US)
  Receive Date: 20200310
  Receipt Date: 20200310
  Transmission Date: 20200409
  Serious: No
  Sender: FDA-Public Use
  Company Number: US-TEVA-2020-US-1195494

PATIENT
  Age: 52 Year
  Sex: Female

DRUGS (2)
  1. CLONAZEPAM. [Suspect]
     Active Substance: CLONAZEPAM
     Dosage: GREEN CLONAZEPAM 1MG PILLS BY BREAKING IT IN 4 PARTS (0.25 MG)
     Route: 065
  2. CLONAZEPAM. [Suspect]
     Active Substance: CLONAZEPAM
     Indication: ANXIETY
     Dosage: BREAK THE TABLETS IN HALF, 60 TABLETS
     Route: 065

REACTIONS (5)
  - Drug ineffective [Unknown]
  - Slow speech [Unknown]
  - Feeling drunk [Unknown]
  - Somnolence [Unknown]
  - Wrong technique in product usage process [Unknown]

NARRATIVE: CASE EVENT DATE: 20200220
